FAERS Safety Report 20471096 (Version 3)
Quarter: 2022Q2

REPORT INFORMATION
  Report Type: Spontaneous
  Country: US (occurrence: US)
  Receive Date: 20220214
  Receipt Date: 20220504
  Transmission Date: 20220721
  Serious: Yes (Hospitalization)
  Sender: FDA-Public Use
  Company Number: US-TEVA-2022-US-2007177

PATIENT
  Age: 70 Year
  Sex: Female

DRUGS (3)
  1. CARBOPLATIN [Suspect]
     Active Substance: CARBOPLATIN
     Indication: Metastases to peritoneum
     Dosage: HYPERTHERMIC INTRAPERITONEAL CHEMOTHERAPY
     Route: 033
  2. FILGRASTIM [Suspect]
     Active Substance: FILGRASTIM
     Indication: Neutrophil count decreased
     Route: 065
  3. MITOMYCIN C [Suspect]
     Active Substance: MITOMYCIN
     Indication: Metastases to peritoneum
     Dosage: HYPERTHERMIC INTRAPERITONEAL CHEMOTHERAPY
     Route: 033

REACTIONS (6)
  - Myelosuppression [Recovering/Resolving]
  - Pancytopenia [Recovering/Resolving]
  - Encephalopathy [Recovered/Resolved]
  - Leukocytosis [Recovering/Resolving]
  - Anaemia [Recovering/Resolving]
  - Thrombocytopenia [Recovering/Resolving]
